FAERS Safety Report 20750034 (Version 1)
Quarter: 2022Q2

REPORT INFORMATION
  Report Type: Spontaneous
  Country: US (occurrence: None)
  Receive Date: 20220425
  Receipt Date: 20220425
  Transmission Date: 20220721
  Serious: No
  Sender: FDA-Public Use
  Company Number: None

PATIENT
  Age: 92 Year
  Sex: Male
  Weight: 75.3 kg

DRUGS (5)
  1. ABIRATERONE [Suspect]
     Active Substance: ABIRATERONE
     Indication: Prostate cancer
     Dosage: FREQUENCY : DAILY;?
     Route: 048
     Dates: start: 20210731, end: 20220425
  2. ATORVASTATIN [Concomitant]
     Active Substance: ATORVASTATIN
  3. COLACE CLEAR [Concomitant]
     Active Substance: DOCUSATE SODIUM
  4. IBUPROFEN [Concomitant]
     Active Substance: IBUPROFEN
  5. ZOLOFT [Concomitant]
     Active Substance: SERTRALINE HYDROCHLORIDE

REACTIONS (2)
  - Disease progression [None]
  - Prostatic specific antigen increased [None]
